FAERS Safety Report 21762875 (Version 2)
Quarter: 2023Q1

REPORT INFORMATION
  Report Type: Report from Study
  Country: US (occurrence: US)
  Receive Date: 20221221
  Receipt Date: 20230309
  Transmission Date: 20230418
  Serious: No
  Sender: FDA-Public Use
  Company Number: US-ABBVIE-4236929

PATIENT
  Age: 75 Year
  Sex: Female

DRUGS (2)
  1. HUMIRA [Suspect]
     Active Substance: ADALIMUMAB
     Indication: Colitis ulcerative
     Route: 058
     Dates: start: 202109
  2. EYLEA [Concomitant]
     Active Substance: AFLIBERCEPT
     Indication: Macular degeneration

REACTIONS (8)
  - SARS-CoV-2 test positive [Recovered/Resolved]
  - COVID-19 [Recovering/Resolving]
  - Influenza [Recovered/Resolved]
  - Wrong technique in product usage process [Not Recovered/Not Resolved]
  - Influenza [Recovered/Resolved]
  - Fungal infection [Recovered/Resolved]
  - Influenza [Recovered/Resolved]
  - SARS-CoV-2 test positive [Recovered/Resolved]

NARRATIVE: CASE EVENT DATE: 20211221
